FAERS Safety Report 4713424-X (Version None)
Quarter: 2005Q3

REPORT INFORMATION
  Report Type: 
  Country: None (occurrence: None)
  Receive Date: 20050713
  Receipt Date: 20050706
  Transmission Date: 20060218
  Serious: Yes (Death, Hospitalization)
  Sender: FDA-Public Use
  Company Number: US-KINGPHARMUSA00001-K200500916

PATIENT
  Age: 25 Year
  Sex: Female

DRUGS (3)
  1. TAPAZOLE [Suspect]
     Indication: HYPERTHYROIDISM
     Dosage: 10 MG, QD
     Dates: start: 20041227, end: 20050101
  2. NIMESULIDE [Concomitant]
     Indication: PHARYNGITIS
     Dosage: 10 MG, UNK
     Dates: start: 20050101
  3. AMOXICILLIN [Concomitant]
     Indication: PHARYNGITIS
     Dates: start: 20050101

REACTIONS (8)
  - CELLULITIS [None]
  - IMMUNOSUPPRESSION [None]
  - MALAISE [None]
  - PHARYNGITIS [None]
  - PYREXIA [None]
  - SEPTIC SHOCK [None]
  - SWELLING [None]
  - WHITE BLOOD CELL COUNT DECREASED [None]
